FAERS Safety Report 23689708 (Version 2)
Quarter: 2024Q2

REPORT INFORMATION
  Report Type: Report from Study
  Country: US (occurrence: US)
  Receive Date: 20240331
  Receipt Date: 20240516
  Transmission Date: 20240715
  Serious: Yes (Other)
  Sender: FDA-Public Use
  Company Number: US-BIOGEN-2024BI01257700

PATIENT
  Age: 66 Year
  Sex: Female

DRUGS (7)
  1. AVONEX [Suspect]
     Active Substance: INTERFERON BETA-1A
     Indication: Multiple sclerosis
     Route: 050
     Dates: start: 20140407
  2. AVONEX [Suspect]
     Active Substance: INTERFERON BETA-1A
  3. AVONEX [Suspect]
     Active Substance: INTERFERON BETA-1A
  4. AVONEX [Suspect]
     Active Substance: INTERFERON BETA-1A
  5. Pfizer corona virus vaccine [Concomitant]
     Indication: Product used for unknown indication
     Route: 050
  6. MODERNA COVID-19 VACCINE [Concomitant]
     Active Substance: ELASOMERAN
     Indication: Product used for unknown indication
     Route: 050
  7. VITAMIN D [Concomitant]
     Active Substance: VITAMIN D NOS
     Indication: Multiple sclerosis
     Route: 050

REACTIONS (2)
  - Neuropathy peripheral [Recovered/Resolved]
  - Post procedural complication [Unknown]

NARRATIVE: CASE EVENT DATE: 20230701
